FAERS Safety Report 8683857 (Version 2)
Quarter: 2012Q4

REPORT INFORMATION
  Report Type: 
  Country: BR (occurrence: BR)
  Receive Date: 20120726
  Receipt Date: 20120924
  Transmission Date: 20130627
  Serious: Yes (Death, Hospitalization, Other)
  Sender: FDA-Public Use
  Company Number: BR-PFIZER INC-2012177638

PATIENT
  Age: 46 Year
  Sex: Male

DRUGS (3)
  1. SUTENT [Suspect]
     Indication: RENAL CELL CARCINOMA
     Dosage: 50 mg (cycle 4 to 2)
     Route: 048
     Dates: start: 20120602
  2. MORPHINE [Concomitant]
     Dosage: 4 in 4 hours
  3. CALCIUM [Concomitant]

REACTIONS (7)
  - Cardio-respiratory arrest [Fatal]
  - Acute respiratory failure [Fatal]
  - Disease progression [Fatal]
  - Renal cell carcinoma [Fatal]
  - Dyspnoea [Unknown]
  - Hallucination [Unknown]
  - Skin exfoliation [Unknown]
